FAERS Safety Report 25919278 (Version 1)
Quarter: 2025Q4

REPORT INFORMATION
  Report Type: Spontaneous
  Country: US (occurrence: US)
  Receive Date: 20251014
  Receipt Date: 20251014
  Transmission Date: 20260117
  Serious: No
  Sender: KALVISTA PHARMACEUTICALS
  Company Number: US-KP-00078

PATIENT
  Age: 61 Year
  Sex: Female
  Weight: 92.079 kg

DRUGS (7)
  1. EKTERLY [Suspect]
     Active Substance: SEBETRALSTAT
     Indication: Hypogammaglobulinaemia
     Dosage: TIME INTERVAL: AS NECESSARY
     Route: 048
     Dates: start: 20250908
  2. ICATIBANT [Concomitant]
     Active Substance: ICATIBANT ACETATE
  3. EPINEPHRINE [Concomitant]
     Active Substance: EPINEPHRINE
  4. HAEGARDA [Concomitant]
     Active Substance: HUMAN C1-ESTERASE INHIBITOR
  5. JANUVIA [Concomitant]
     Active Substance: SITAGLIPTIN PHOSPHATE
  6. TRELEGY ELLIPTA [Concomitant]
     Active Substance: FLUTICASONE FUROATE\UMECLIDINIUM BROMIDE\VILANTEROL TRIFENATATE
  7. ACETAMINOPHEN\HYDROCODONE [Concomitant]
     Active Substance: ACETAMINOPHEN\HYDROCODONE

REACTIONS (2)
  - Heat exhaustion [Unknown]
  - Dehydration [Unknown]

NARRATIVE: CASE EVENT DATE: 20250816
